FAERS Safety Report 7988536-8 (Version None)
Quarter: 2011Q4

REPORT INFORMATION
  Report Type: 
  Country: None (occurrence: None)
  Receive Date: 20111218
  Receipt Date: 20111207
  Transmission Date: 20120403
  Serious: Yes (Hospitalization, Other)
  Sender: FDA-Public Use
  Company Number: US-ASTRAZENECA-2011SE43388

PATIENT
  Age: 39 Year
  Sex: Female
  Weight: 54.4 kg

DRUGS (24)
  1. ATENOLOL [Concomitant]
     Route: 048
  2. METOPROLOL TARTRATE [Concomitant]
     Route: 048
  3. PROPOXYPHENE HYDROCHLORIDE [Concomitant]
     Route: 048
  4. ZOFRAN [Concomitant]
     Indication: NAUSEA
     Route: 042
     Dates: start: 20000101
  5. BENADRYL [Concomitant]
     Route: 048
  6. PEPCID [Concomitant]
     Route: 048
  7. SEROQUEL [Suspect]
     Indication: BIPOLAR DISORDER
     Route: 048
  8. SEROQUEL [Suspect]
     Route: 048
  9. METOPROLOL TARTRATE [Concomitant]
     Indication: HEART RATE INCREASED
     Route: 048
  10. DILAUDID [Concomitant]
     Indication: PAIN
     Dosage: 1 MG, EVERY TWO HOURS
     Route: 042
     Dates: start: 20000101
  11. PROPROFOL [Concomitant]
     Route: 042
  12. CIPROFLOXACIN [Concomitant]
     Route: 042
  13. ETODOLAC [Concomitant]
     Indication: PAIN
     Route: 048
  14. PREDNISONE [Concomitant]
     Route: 048
  15. CYCLOBENZAPRINE [Concomitant]
  16. PAXIL [Concomitant]
  17. PHENERGAN [Concomitant]
     Indication: NAUSEA
  18. DICLOFENAC SODIUM [Concomitant]
     Indication: PAIN
     Route: 048
  19. METFORMIN HCL [Concomitant]
  20. TRAZODONE HCL [Concomitant]
  21. FISH OIL [Concomitant]
     Dosage: EVERY DAY
     Route: 048
  22. ATIVAN [Concomitant]
     Indication: ANXIETY
     Route: 048
  23. MORPHINE [Concomitant]
     Dates: start: 20010101
  24. FLEXERIL [Concomitant]
     Indication: MYALGIA
     Route: 048

REACTIONS (30)
  - DIARRHOEA [None]
  - ANAEMIA [None]
  - SINUS CONGESTION [None]
  - NERVOUSNESS [None]
  - VOMITING [None]
  - HEADACHE [None]
  - NAUSEA [None]
  - DERMATITIS CONTACT [None]
  - LEUKOCYTOSIS [None]
  - KIDNEY INFECTION [None]
  - DUODENITIS [None]
  - ROAD TRAFFIC ACCIDENT [None]
  - DEHYDRATION [None]
  - CONSTIPATION [None]
  - DYSPEPSIA [None]
  - GASTRIC ULCER HAEMORRHAGE [None]
  - ANXIETY [None]
  - NASOPHARYNGITIS [None]
  - DEPRESSION [None]
  - DUODENAL ULCER [None]
  - MALAISE [None]
  - RENAL FAILURE CHRONIC [None]
  - CONVULSION [None]
  - ABDOMINAL PAIN UPPER [None]
  - RENAL FAILURE [None]
  - BACK PAIN [None]
  - HYPERTENSION [None]
  - TACHYCARDIA [None]
  - ASTHENIA [None]
  - DRUG DOSE OMISSION [None]
